FAERS Safety Report 10922387 (Version 2)
Quarter: 2015Q1

REPORT INFORMATION
  Report Type: Report from Study
  Country: TW (occurrence: TW)
  Receive Date: 20150317
  Receipt Date: 20150327
  Transmission Date: 20150721
  Serious: Yes (Death)
  Sender: FDA-Public Use
  Company Number: PHHY2014TW138184

PATIENT
  Age: 94 Year
  Sex: Female

DRUGS (1)
  1. ACLASTA [Suspect]
     Active Substance: ZOLEDRONIC ACID
     Indication: OSTEOPOROSIS
     Dosage: 5 MG, STAT
     Route: 041
     Dates: start: 20120903, end: 20131024

REACTIONS (1)
  - Cardiac failure congestive [Fatal]

NARRATIVE: CASE EVENT DATE: 20140128
